FAERS Safety Report 5743366-2 (Version None)
Quarter: 2008Q2

REPORT INFORMATION
  Report Type: 
  Country: None (occurrence: None)
  Receive Date: 20080519
  Receipt Date: 20080519
  Transmission Date: 20081010
  Serious: Yes (Life-Threatening, Hospitalization, Disabling, Other)
  Sender: FDA-Public Use
  Company Number: None

PATIENT
  Age: 13 Year
  Sex: Female
  Weight: 60 kg

DRUGS (1)
  1. WINRHO [Suspect]
     Indication: IDIOPATHIC THROMBOCYTOPENIC PURPURA
     Dosage: ONE DOSE 1 TIME IV
     Route: 042
     Dates: start: 20080326, end: 20080326

REACTIONS (13)
  - ABDOMINAL PAIN UPPER [None]
  - CHILLS [None]
  - CONTINUOUS HAEMODIAFILTRATION [None]
  - CRYING [None]
  - HAEMODIALYSIS [None]
  - HAEMOLYSIS [None]
  - MYALGIA [None]
  - NAUSEA [None]
  - NEPHRITIS INTERSTITIAL [None]
  - PAIN IN EXTREMITY [None]
  - RENAL FAILURE ACUTE [None]
  - TREMOR [None]
  - VOMITING [None]
